FAERS Safety Report 8994523 (Version 2)
Quarter: 2013Q1

REPORT INFORMATION
  Report Type: Spontaneous
  Country: US (occurrence: US)
  Receive Date: 20130102
  Receipt Date: 20130204
  Transmission Date: 20140127
  Serious: Yes (Other)
  Sender: FDA-Public Use
  Company Number: US-AMGEN-USASP2012079889

PATIENT
  Age: 37 Year
  Sex: Female
  Weight: 82.99 kg

DRUGS (12)
  1. ENBREL [Suspect]
     Indication: PSORIASIS
     Dosage: 50 MG, 2 TIMES/WK
  2. ENBREL [Suspect]
     Indication: PSORIATIC ARTHROPATHY
  3. TOPROL [Concomitant]
     Dosage: 100 MG, QD EXTENDED RELEAS 24 HOUR
  4. CARTIA                             /00002701/ [Concomitant]
     Dosage: 240 MG, QD EXTENDED RELEASE 24 HOUR
  5. HYDROCHLOROTHIAZIDE [Concomitant]
     Dosage: 25 MG, QD
  6. ZANTAC [Concomitant]
     Dosage: 150 MG, BID
  7. WELLBUTRIN [Concomitant]
     Dosage: 150 MG, QD EXTENDED RELEASE 24 HOUR ONCE IN THE MORNING
  8. TRAMADOL HCL [Concomitant]
     Dosage: 50 MG, AS NEEDED EVERY 6 HRS
  9. CLARITIN                           /00413701/ [Concomitant]
     Dosage: 10 MG, QD
  10. IBUPROFEN [Concomitant]
     Dosage: 600-800 MG 1-2 TABLETS DAILY
  11. VECTICAL [Concomitant]
     Dosage: 3 MCG/GM ONE APPLICATION TO AFFECTED AREA TWICE A DAY
  12. DOXYCYCLINE HYCLATE [Concomitant]
     Dosage: 100 MG, BID

REACTIONS (7)
  - Pulmonary mass [Unknown]
  - Rotator cuff syndrome [Unknown]
  - Hyperkeratosis [Unknown]
  - Rash [Unknown]
  - Psoriatic arthropathy [Unknown]
  - Psoriasis [Unknown]
  - Sinusitis [Unknown]
